FAERS Safety Report 18540070 (Version 1)
Quarter: 2020Q4

REPORT INFORMATION
  Report Type: Report from Study
  Country: CO (occurrence: CO)
  Receive Date: 20201124
  Receipt Date: 20201124
  Transmission Date: 20210114
  Serious: Yes (Death, Other)
  Sender: FDA-Public Use
  Company Number: CO-BRISTOL-MYERS SQUIBB COMPANY-BMS-2020-098113

PATIENT
  Age: 43 Year
  Sex: Female

DRUGS (1)
  1. NIVOLUMAB [Suspect]
     Active Substance: NIVOLUMAB
     Indication: RENAL CANCER
     Dosage: 129 MILLIGRAM; EVERY 15 DAYS
     Route: 042
     Dates: start: 20200626

REACTIONS (6)
  - Electrolyte imbalance [Unknown]
  - Diarrhoea [Unknown]
  - Cardio-respiratory arrest [Fatal]
  - Off label use [Unknown]
  - Eschar [Unknown]
  - Vomiting [Unknown]

NARRATIVE: CASE EVENT DATE: 20201113
